FAERS Safety Report 25528581 (Version 1)
Quarter: 2025Q3

REPORT INFORMATION
  Report Type: Spontaneous
  Country: EU (occurrence: EU)
  Receive Date: 20250708
  Receipt Date: 20250708
  Transmission Date: 20251021
  Serious: Yes (Other)
  Sender: SANDOZ
  Company Number: EU-ORESUND-25OPAJY0108P

PATIENT
  Age: 44 Year
  Sex: Male

DRUGS (4)
  1. ADALIMUMAB [Suspect]
     Active Substance: ADALIMUMAB
     Indication: Psoriasis
     Route: 065
     Dates: start: 2023
  2. METHOTREXATE [Suspect]
     Active Substance: METHOTREXATE
     Indication: Psoriasis
     Route: 065
  3. CLARITHROMYCIN [Concomitant]
     Active Substance: CLARITHROMYCIN
     Indication: Mycobacterium marinum infection
     Dosage: 500 MG, BID
     Route: 065
  4. ETHAMBUTOL [Concomitant]
     Active Substance: ETHAMBUTOL HYDROCHLORIDE
     Indication: Mycobacterium marinum infection
     Dosage: 1200 MG, QD
     Route: 065

REACTIONS (8)
  - Granuloma [Recovered/Resolved]
  - Atypical mycobacterium test positive [Recovered/Resolved]
  - Mycobacterium marinum infection [Recovered/Resolved]
  - Skin mass [Recovered/Resolved]
  - Biopsy skin abnormal [Recovered/Resolved]
  - Granuloma [Recovered/Resolved]
  - Therapy change [Unknown]
  - Drug ineffective [Unknown]
